FAERS Safety Report 15606487 (Version 1)
Quarter: 2018Q4

REPORT INFORMATION
  Report Type: Other
  Country: ES (occurrence: ES)
  Receive Date: 20181112
  Receipt Date: 20181112
  Transmission Date: 20190205
  Serious: Yes (Life-Threatening, Other)
  Sender: FDA-Public Use
  Company Number: ES-APOTEX-2018AP024342

PATIENT
  Age: 42 Year
  Sex: Female

DRUGS (12)
  1. LAMOTRIGINE. [Suspect]
     Active Substance: LAMOTRIGINE
     Dosage: 100 MG, QD
     Route: 065
  2. PROGESTERONE. [Concomitant]
     Active Substance: PROGESTERONE
     Indication: EPILEPSY
     Dosage: 100 MG, TID
     Route: 065
  3. ZONISAMIDE. [Concomitant]
     Active Substance: ZONISAMIDE
     Indication: EPILEPSY
     Dosage: 500 MG, QD
     Route: 065
  4. LAMOTRIGINE. [Suspect]
     Active Substance: LAMOTRIGINE
     Indication: EPILEPSY
     Dosage: 150 MG, QD
     Route: 065
  5. CLOBAZAM. [Suspect]
     Active Substance: CLOBAZAM
     Indication: EPILEPSY
     Dosage: 30 MG, QD
     Route: 065
  6. LEVETIRACETAM. [Suspect]
     Active Substance: LEVETIRACETAM
     Indication: PETIT MAL EPILEPSY
  7. LEVETIRACETAM. [Suspect]
     Active Substance: LEVETIRACETAM
     Indication: EPILEPSY
     Dosage: 1500 MG, QD
     Route: 065
  8. VALPROIC ACID. [Concomitant]
     Active Substance: VALPROIC ACID
     Indication: EPILEPSY
     Dosage: THERAPY STARTED AT THE AGE OF 16 YEARS AS A MAINTENANCE THERAPY, LATER DOSE INCREASED DUE TO FURT...
     Route: 065
  9. TOPIRAMATE. [Concomitant]
     Active Substance: TOPIRAMATE
     Indication: EPILEPSY
     Dosage: 400 MG, QD
     Route: 065
  10. VALPROIC ACID. [Concomitant]
     Active Substance: VALPROIC ACID
     Indication: PETIT MAL EPILEPSY
  11. ETHOSUXIMIDE. [Suspect]
     Active Substance: ETHOSUXIMIDE
     Indication: EPILEPSY
     Dosage: 100 MG, QD
     Route: 065
  12. VALPROIC ACID. [Concomitant]
     Active Substance: VALPROIC ACID
     Indication: PRODUCT USED FOR UNKNOWN INDICATION
     Dosage: 1500 MG, QD
     Route: 065

REACTIONS (7)
  - Suicidal behaviour [Unknown]
  - Somnolence [Unknown]
  - Depressed mood [Unknown]
  - Dizziness [Unknown]
  - Vomiting [Unknown]
  - Dyspepsia [Unknown]
  - Drug ineffective [Unknown]
